FAERS Safety Report 20614864 (Version 3)
Quarter: 2022Q2

REPORT INFORMATION
  Report Type: Spontaneous
  Country: GB (occurrence: GB)
  Receive Date: 20220321
  Receipt Date: 20220523
  Transmission Date: 20220721
  Serious: Yes (Other)
  Sender: FDA-Public Use
  Company Number: None

PATIENT
  Sex: Female

DRUGS (12)
  1. FENTANYL [Suspect]
     Active Substance: FENTANYL
     Indication: Pain
     Dosage: UNK,  IN 1ST TRIMESTER
     Route: 062
  2. TRAMADOL [Suspect]
     Active Substance: TRAMADOL
     Indication: Pain
     Dosage: 8 DOSAGE FORM, QD (2 DOSAGE FORM 4/DAY)
     Route: 048
  3. TRAMADOL [Suspect]
     Active Substance: TRAMADOL
     Dosage: 2 DOSAGE FORM, QD, IN FIRST TRIMESTER
     Route: 048
  4. COCODAMOL [Suspect]
     Active Substance: ACETAMINOPHEN\CODEINE PHOSPHATE
     Indication: Pain
     Dosage: 8 DF, UNKNOWN, 2DF, 4/DAY
     Route: 048
  5. COCODAMOL [Suspect]
     Active Substance: ACETAMINOPHEN\CODEINE PHOSPHATE
     Dosage: 2 DOSAGE FORM, UNKNOWN, 4/DAY
     Route: 048
  6. COCODAMOL [Suspect]
     Active Substance: ACETAMINOPHEN\CODEINE PHOSPHATE
     Dosage: 8 DOSAGE FORM, QD, (8 DF, QD (2 DF, 4/DAY) IN 1ST TRIMESTER
     Route: 048
  7. COCODAMOL [Suspect]
     Active Substance: ACETAMINOPHEN\CODEINE PHOSPHATE
     Dosage: 2 DOSAGE FORM, QD (IN 1ST TRIMESTER)
     Route: 048
  8. COCODAMOL [Suspect]
     Active Substance: ACETAMINOPHEN\CODEINE PHOSPHATE
     Dosage: 2 DOSAGE FORM, QD (IN 1ST TRIMESTER, CO-CODAMOL (EFFERVESCENT TABLET))
     Route: 048
  9. COCODAMOL [Suspect]
     Active Substance: ACETAMINOPHEN\CODEINE PHOSPHATE
     Dosage: 2 DOSAGE FORM, QD (2 DOSAGE FORM, FOUR TIMES/DAY (8 DOSAGE FORM ONCE A DAY))
     Route: 048
  10. ACETAMINOPHEN [Suspect]
     Active Substance: ACETAMINOPHEN
     Indication: Pain
     Dosage: 8 DOSAGE FORM, QD (8 DF, QD (2 DF, 4/DAY) IN 1ST TRIMESTER
     Route: 048
  11. ACETAMINOPHEN [Suspect]
     Active Substance: ACETAMINOPHEN
     Dosage: 8 DOSAGE FORM, QD (8 DF, QD (2 DF, 4/DAY) IN 1ST TRIMESTER
     Route: 048
  12. FENTANYL [Suspect]
     Active Substance: FENTANYL
     Indication: Pain
     Dosage: UNK
     Route: 065

REACTIONS (10)
  - Amnesia [Recovered/Resolved]
  - Withdrawal syndrome [Recovered/Resolved]
  - Dependence [Recovered/Resolved]
  - Somnolence [Recovered/Resolved]
  - Nausea [Recovered/Resolved]
  - Maternal exposure during pregnancy [Unknown]
  - Body dysmorphic disorder [Recovered/Resolved]
  - Crying [Recovered/Resolved]
  - Drug abuse [Unknown]
  - Drug ineffective [Unknown]
